FAERS Safety Report 8734321 (Version 2)
Quarter: 2015Q2

REPORT INFORMATION
  Report Type: Report from Study
  Country: US (occurrence: US)
  Receive Date: 20120821
  Receipt Date: 20150629
  Transmission Date: 20150821
  Serious: Yes (Death, Hospitalization, Other)
  Sender: FDA-Public Use
  Company Number: US-ROCHE-1100008

PATIENT
  Age: 43 Year
  Sex: Male

DRUGS (10)
  1. VALIUM [Concomitant]
     Active Substance: DIAZEPAM
     Route: 065
  2. MILK OF MAGNESIA [Concomitant]
     Active Substance: MAGNESIUM HYDROXIDE
     Route: 048
  3. HEPARIN [Concomitant]
     Active Substance: HEPARIN SODIUM
     Route: 065
  4. MORPHINE [Concomitant]
     Active Substance: MORPHINE
     Route: 040
  5. POTASSIUM CHLORIDE. [Concomitant]
     Active Substance: POTASSIUM CHLORIDE
     Route: 065
  6. ACTIVASE [Suspect]
     Active Substance: ALTEPLASE
     Indication: ACUTE MYOCARDIAL INFARCTION
     Route: 065
  7. VALIUM [Concomitant]
     Active Substance: DIAZEPAM
     Route: 065
  8. TYLENOL [Concomitant]
     Active Substance: ACETAMINOPHEN
  9. ACTIVASE [Suspect]
     Active Substance: ALTEPLASE
     Route: 065
  10. VALIUM [Concomitant]
     Active Substance: DIAZEPAM
     Route: 065

REACTIONS (11)
  - Metabolic acidosis [Unknown]
  - Hypotension [Fatal]
  - Supraventricular tachycardia [Unknown]
  - Ventricular arrhythmia [Fatal]
  - Bradycardia [Unknown]
  - Lethargy [Unknown]
  - Cardiac arrest [Unknown]
  - No therapeutic response [Fatal]
  - Arrhythmia supraventricular [Fatal]
  - Pain [Unknown]
  - Cardiogenic shock [Unknown]

NARRATIVE: CASE EVENT DATE: 19881215
